FAERS Safety Report 22218772 (Version 4)
Quarter: 2023Q2

REPORT INFORMATION
  Report Type: Spontaneous
  Country: GB (occurrence: GB)
  Receive Date: 20230417
  Receipt Date: 20230609
  Transmission Date: 20230721
  Serious: No
  Sender: FDA-Public Use
  Company Number: GB-PFIZER INC-PV202300064046

PATIENT
  Age: 1 Year
  Sex: Female

DRUGS (1)
  1. GENOTROPIN [Suspect]
     Active Substance: SOMATROPIN
     Indication: Hypopituitarism
     Dosage: 0.2 MG, 1X/DAY
     Route: 058

REACTIONS (7)
  - Device issue [Unknown]
  - Drug dose omission by device [Unknown]
  - Device breakage [Unknown]
  - Device use error [Unknown]
  - Device leakage [Unknown]
  - Device mechanical issue [Unknown]
  - Off label use [Unknown]
